FAERS Safety Report 15147851 (Version 2)
Quarter: 2018Q3

REPORT INFORMATION
  Report Type: Spontaneous
  Country: US (occurrence: US)
  Receive Date: 20180716
  Receipt Date: 20180731
  Transmission Date: 20181010
  Serious: Yes (Other)
  Sender: FDA-Public Use
  Company Number: US-ROCHE-2151853

PATIENT
  Age: 65 Year
  Sex: Male

DRUGS (1)
  1. OCREVUS [Suspect]
     Active Substance: OCRELIZUMAB
     Indication: PRODUCT USED FOR UNKNOWN INDICATION
     Route: 065
     Dates: start: 20171222

REACTIONS (5)
  - Infection [Unknown]
  - Sepsis [Unknown]
  - Urinary tract infection [Unknown]
  - Clostridium difficile infection [Unknown]
  - Haematuria [Unknown]

NARRATIVE: CASE EVENT DATE: 20171228
